FAERS Safety Report 9414989 (Version 3)
Quarter: 2013Q4

REPORT INFORMATION
  Report Type: Report from Study
  Country: CN (occurrence: CN)
  Receive Date: 20130723
  Receipt Date: 20131211
  Transmission Date: 20140711
  Serious: Yes (Hospitalization, Other)
  Sender: FDA-Public Use
  Company Number: CN-ROCHE-1250961

PATIENT
  Sex: Male
  Weight: 67.5 kg

DRUGS (5)
  1. CELLCEPT [Suspect]
     Indication: LIVER TRANSPLANT
     Route: 048
     Dates: start: 20040116
  2. CELLCEPT [Suspect]
     Route: 048
  3. CELLCEPT [Suspect]
     Route: 048
  4. PROGRAF [Suspect]
     Indication: LIVER TRANSPLANT
     Route: 048
     Dates: start: 20040116
  5. PROGRAF [Suspect]
     Route: 048
     Dates: end: 2011

REACTIONS (8)
  - Extrasystoles [Recovering/Resolving]
  - Myocardial infarction [Recovering/Resolving]
  - Blood creatinine increased [Not Recovered/Not Resolved]
  - Blood urea increased [Unknown]
  - Anaemia [Unknown]
  - Red blood cell count decreased [Unknown]
  - Alanine aminotransferase increased [Recovered/Resolved]
  - White blood cell count decreased [Recovered/Resolved]
